FAERS Safety Report 11668251 (Version 1)
Quarter: 2015Q4

REPORT INFORMATION
  Report Type: Spontaneous
  Country: US (occurrence: US)
  Receive Date: 20151027
  Receipt Date: 20151027
  Transmission Date: 20160304
  Serious: No
  Sender: FDA-Public Use
  Company Number: US-ELI_LILLY_AND_COMPANY-US201001001059

PATIENT
  Age: 69 Year
  Sex: Female

DRUGS (3)
  1. EYE DROPS [Concomitant]
     Active Substance: TETRAHYDROZOLINE HYDROCHLORIDE
     Dosage: UNK, UNKNOWN
  2. CHOLESTEROL- AND TRIGLYCERIDE REDUCERS [Concomitant]
     Active Substance: UNSPECIFIED INGREDIENT
     Dosage: UNK, UNKNOWN
  3. FORTEO [Suspect]
     Active Substance: TERIPARATIDE
     Indication: OSTEOPOROSIS
     Dosage: 20 UG, DAILY (1/D)
     Dates: start: 20090609

REACTIONS (4)
  - Cataract operation [Unknown]
  - Scratch [Not Recovered/Not Resolved]
  - Pruritus generalised [Not Recovered/Not Resolved]
  - Muscle spasms [Unknown]

NARRATIVE: CASE EVENT DATE: 2009
